FAERS Safety Report 11792824 (Version 1)
Quarter: 2015Q4

REPORT INFORMATION
  Report Type: Spontaneous
  Country: CA (occurrence: None)
  Receive Date: 20151130
  Receipt Date: 20151130
  Transmission Date: 20160305
  Serious: Yes (Hospitalization)
  Sender: FDA-Public Use
  Company Number: 2015US-106208

PATIENT
  Age: 64 Year
  Sex: Male

DRUGS (1)
  1. DILTIAZEM (DILTIAZEM) UNKNOWN [Suspect]
     Active Substance: DILTIAZEM
     Indication: PRODUCT USED FOR UNKNOWN INDICATION
     Route: 048

REACTIONS (12)
  - Intentional overdose [None]
  - Bradycardia [None]
  - Shock [None]
  - Generalised tonic-clonic seizure [None]
  - Tetany [None]
  - Lactic acidosis [None]
  - Cardiac arrest [None]
  - Device capturing issue [None]
  - Ischaemic hepatitis [None]
  - Haemodynamic instability [None]
  - Toxicity to various agents [None]
  - Anuria [None]
